FAERS Safety Report 5372154-4 (Version None)
Quarter: 2007Q2

REPORT INFORMATION
  Report Type: 
  Country: None (occurrence: None)
  Receive Date: 20070627
  Receipt Date: 20070619
  Transmission Date: 20071010
  Serious: Yes (Other)
  Sender: FDA-Public Use
  Company Number: US-SANOFI-SYNTHELABO-A03200700452

PATIENT
  Sex: Male

DRUGS (9)
  1. TAMSULOSIN HCL [Concomitant]
     Route: 048
  2. PHENYTOIN [Concomitant]
     Dosage: 100 MG (2 CAPSULES) BID
     Route: 048
  3. NITROGLYCERIN [Concomitant]
     Route: 060
  4. LAMOTRIGINE [Concomitant]
     Route: 048
  5. LOVASTATIN [Concomitant]
     Route: 048
  6. ATENOLOL [Concomitant]
     Dosage: 50 MG (2 TABLETS) BID
     Route: 048
  7. PLAVIX [Suspect]
     Indication: MYOCARDIAL INFARCTION
     Route: 048
     Dates: start: 20010207, end: 20010227
  8. NITROGLYCERIN [Concomitant]
     Route: 061
  9. ASPIRIN [Concomitant]
     Route: 048
     Dates: start: 19990101

REACTIONS (11)
  - AMNESIA [None]
  - ANTICONVULSANT DRUG LEVEL INCREASED [None]
  - ASTHENIA [None]
  - CONVULSION [None]
  - DRUG INTERACTION [None]
  - FEELING HOT AND COLD [None]
  - HYPOAESTHESIA [None]
  - LIP SWELLING [None]
  - MUSCULOSKELETAL PAIN [None]
  - PARAESTHESIA [None]
  - TREMOR [None]
